FAERS Safety Report 18910953 (Version 2)
Quarter: 2021Q1

REPORT INFORMATION
  Report Type: Spontaneous
  Country: NL (occurrence: NL)
  Receive Date: 20210218
  Receipt Date: 20210302
  Transmission Date: 20210420
  Serious: Yes (Hospitalization)
  Sender: FDA-Public Use
  Company Number: NL-PFIZER INC-2021129715

PATIENT
  Sex: Female

DRUGS (9)
  1. CLOMIPRAMINE [Suspect]
     Active Substance: CLOMIPRAMINE
     Dosage: UNK
  2. CAFFEINE. [Suspect]
     Active Substance: CAFFEINE
     Dosage: UNK
  3. QUETIAPINE. [Suspect]
     Active Substance: QUETIAPINE
     Dosage: UNK
  4. PARACETAMOL [Suspect]
     Active Substance: ACETAMINOPHEN
     Dosage: UNK
  5. THEOPHYLLINE [Suspect]
     Active Substance: THEOPHYLLINE ANHYDROUS
     Dosage: UNK
  6. LORAZEPAM. [Suspect]
     Active Substance: LORAZEPAM
     Dosage: UNK
  7. CHLORPROMAZINE. [Suspect]
     Active Substance: CHLORPROMAZINE
     Dosage: UNK
  8. LIDOCAINE. [Suspect]
     Active Substance: LIDOCAINE
     Dosage: UNK
  9. IMIPRAMINE [Suspect]
     Active Substance: IMIPRAMINE
     Dosage: UNK

REACTIONS (2)
  - Toxicity to various agents [Unknown]
  - Depressed level of consciousness [Unknown]
